FAERS Safety Report 17147658 (Version 1)
Quarter: 2019Q4

REPORT INFORMATION
  Report Type: Spontaneous
  Country: US (occurrence: US)
  Receive Date: 20191212
  Receipt Date: 20191212
  Transmission Date: 20200122
  Serious: Yes (Hospitalization)
  Sender: FDA-Public Use
  Company Number: US-ELI_LILLY_AND_COMPANY-US201912002868

PATIENT
  Age: 68 Year
  Sex: Male

DRUGS (1)
  1. BASAGLAR [Suspect]
     Active Substance: INSULIN GLARGINE
     Indication: DIABETES MELLITUS
     Dosage: 70 U, UNKNOWN
     Route: 058
     Dates: start: 1999

REACTIONS (2)
  - Cerebrovascular accident [Not Recovered/Not Resolved]
  - Hemiplegia [Unknown]

NARRATIVE: CASE EVENT DATE: 2016
